FAERS Safety Report 4987204-4 (Version None)
Quarter: 2006Q2

REPORT INFORMATION
  Report Type: 
  Country: None (occurrence: None)
  Receive Date: 20060427
  Receipt Date: 20060427
  Transmission Date: 20061013
  Serious: Yes (Life-Threatening, Hospitalization)
  Sender: FDA-Public Use
  Company Number: None

PATIENT
  Age: 58 Year
  Sex: Male
  Weight: 80 kg

DRUGS (2)
  1. LOVENOX [Suspect]
     Indication: PULMONARY EMBOLISM
     Dosage: 90 MG SQ Q 12 HRS
     Route: 058
     Dates: start: 20060408, end: 20060414
  2. LOVENOX [Suspect]
     Dosage: 80 MG SQ Q 12 HRS
     Route: 058
     Dates: start: 20060414, end: 20060421

REACTIONS (6)
  - ABDOMINAL PAIN LOWER [None]
  - ABDOMINAL PAIN UPPER [None]
  - HAEMATOCHEZIA [None]
  - HYPOTENSION [None]
  - ILL-DEFINED DISORDER [None]
  - MENTAL STATUS CHANGES [None]
